FAERS Safety Report 13163577 (Version 2)
Quarter: 2017Q1

REPORT INFORMATION
  Report Type: Spontaneous
  Country: US (occurrence: US)
  Receive Date: 20170130
  Receipt Date: 20170323
  Transmission Date: 20170428
  Serious: Yes (Other)
  Sender: FDA-Public Use
  Company Number: US-PFIZER INC-2017040354

PATIENT
  Age: 61 Year
  Sex: Male

DRUGS (1)
  1. LIPITOR [Suspect]
     Active Substance: ATORVASTATIN CALCIUM
     Indication: BLOOD CHOLESTEROL ABNORMAL
     Dosage: UNK
     Route: 048
     Dates: start: 201108, end: 201203

REACTIONS (7)
  - Muscular weakness [Unknown]
  - Myopathy [Unknown]
  - Muscle atrophy [Unknown]
  - Disturbance in attention [Unknown]
  - Hepatic enzyme increased [Unknown]
  - Impaired work ability [Unknown]
  - Malaise [Unknown]

NARRATIVE: CASE EVENT DATE: 201410
